FAERS Safety Report 18251352 (Version 5)
Quarter: 2020Q4

REPORT INFORMATION
  Report Type: Spontaneous
  Country: CZ (occurrence: CZ)
  Receive Date: 20200910
  Receipt Date: 20201118
  Transmission Date: 20210113
  Serious: Yes (Death, Hospitalization, Other)
  Sender: FDA-Public Use
  Company Number: CZ-BRISTOL-MYERS SQUIBB COMPANY-BMS-2020-071756

PATIENT
  Age: 64 Year
  Sex: Female

DRUGS (5)
  1. MAGNESIUM [Concomitant]
     Active Substance: MAGNESIUM
     Indication: PRODUCT USED FOR UNKNOWN INDICATION
     Dosage: 500 MG/DAY
     Route: 048
     Dates: start: 2012, end: 20200827
  2. NIVOLUMAB [Suspect]
     Active Substance: NIVOLUMAB
     Indication: PLEURAL MESOTHELIOMA MALIGNANT
     Dosage: UNK 1 (UNIT UNSPECIFIED)
     Route: 042
     Dates: start: 20200813
  3. MEGAPLEX [Concomitant]
     Indication: DECREASED APPETITE
     Dosage: 320 MG/DAY
     Route: 048
     Dates: start: 20200518, end: 20200827
  4. TRALGIT [Concomitant]
     Active Substance: TRAMADOL
     Indication: PAIN
     Dosage: 200 MG/DAY
     Route: 048
     Dates: start: 2012, end: 20200827
  5. AULIN [Concomitant]
     Active Substance: NIMESULIDE
     Indication: PAIN
     Dosage: 200 MG/DAY
     Route: 048
     Dates: start: 20200601, end: 20200827

REACTIONS (3)
  - Myocarditis [Fatal]
  - Intentional product use issue [Unknown]
  - Autoimmune myositis [Fatal]

NARRATIVE: CASE EVENT DATE: 20200827
